FAERS Safety Report 7771939-4 (Version None)
Quarter: 2011Q3

REPORT INFORMATION
  Report Type: 
  Country: None (occurrence: None)
  Receive Date: 20110922
  Receipt Date: 20110614
  Transmission Date: 20111222
  Serious: No
  Sender: FDA-Public Use
  Company Number: US-ASTRAZENECA-2010SE12891

PATIENT
  Age: 57 Year
  Sex: Female
  Weight: 56.7 kg

DRUGS (7)
  1. SEROQUEL XR [Suspect]
     Route: 048
  2. EFFEXOR XR [Concomitant]
     Indication: ANXIETY
  3. EFFEXOR XR [Concomitant]
  4. SEROQUEL XR [Suspect]
     Route: 048
     Dates: start: 20100309
  5. TOPAMAX [Concomitant]
  6. SEROQUEL XR [Suspect]
     Indication: BIPOLAR II DISORDER
     Route: 048
     Dates: start: 20080101
  7. TOPAMAX [Concomitant]
     Indication: AFFECTIVE DISORDER

REACTIONS (4)
  - WRONG TECHNIQUE IN DRUG USAGE PROCESS [None]
  - DRUG INEFFECTIVE [None]
  - INSOMNIA [None]
  - WEIGHT INCREASED [None]
